FAERS Safety Report 5387497-8 (Version None)
Quarter: 2007Q3

REPORT INFORMATION
  Report Type: 
  Country: None (occurrence: None)
  Receive Date: 20070716
  Receipt Date: 20070712
  Transmission Date: 20080115
  Serious: Yes (Other)
  Sender: FDA-Public Use
  Company Number: GB-BRISTOL-MYERS SQUIBB COMPANY-13844089

PATIENT
  Age: 59 Year
  Sex: Male

DRUGS (2)
  1. IRBESARTAN [Suspect]
  2. IOPIDINE [Concomitant]

REACTIONS (1)
  - COLD AGGLUTININS POSITIVE [None]
